FAERS Safety Report 16761068 (Version 3)
Quarter: 2021Q3

REPORT INFORMATION
  Report Type: Report from Study
  Country: US (occurrence: US)
  Receive Date: 20190830
  Receipt Date: 20210820
  Transmission Date: 20211014
  Serious: No
  Sender: FDA-Public Use
  Company Number: PHEH2019US035917

PATIENT
  Sex: Female

DRUGS (1)
  1. COSENTYX [Suspect]
     Active Substance: SECUKINUMAB
     Indication: PRODUCT USED FOR UNKNOWN INDICATION
     Dosage: 300 MG, UNK
     Route: 065

REACTIONS (6)
  - Malaise [Unknown]
  - Product storage error [Unknown]
  - Product dose omission issue [Unknown]
  - Peripheral swelling [Unknown]
  - Skin disorder [Unknown]
  - Skin haemorrhage [Unknown]
